FAERS Safety Report 14831819 (Version 2)
Quarter: 2018Q2

REPORT INFORMATION
  Report Type: Report from Study
  Country: US (occurrence: US)
  Receive Date: 20180501
  Receipt Date: 20180504
  Transmission Date: 20180711
  Serious: Yes (Other)
  Sender: FDA-Public Use
  Company Number: US-ROCHE-2114411

PATIENT

DRUGS (1)
  1. CAPECITABINE. [Suspect]
     Active Substance: CAPECITABINE
     Indication: BREAST CANCER RECURRENT
     Dosage: MOST FREQUENTLY AT 500MG TWICE A DAY (RANGE 1000 MG TO 1500MG DAILY)
     Route: 065

REACTIONS (3)
  - Impaired healing [Unknown]
  - Skin toxicity [Unknown]
  - Lymphoedema [Unknown]
